FAERS Safety Report 8760963 (Version 3)
Quarter: 2013Q2

REPORT INFORMATION
  Report Type: Spontaneous
  Country: US (occurrence: US)
  Receive Date: 20120830
  Receipt Date: 20130520
  Transmission Date: 20140414
  Serious: Yes (Hospitalization, Disabling, Other)
  Sender: FDA-Public Use
  Company Number: US-009507513-1208USA010975

PATIENT
  Sex: Female
  Weight: 120.18 kg

DRUGS (2)
  1. NUVARING [Suspect]
     Indication: CONTRACEPTION
     Dosage: UNK
     Route: 067
     Dates: start: 20080731, end: 20081117
  2. NUVARING [Suspect]
     Indication: MENSTRUAL DISORDER

REACTIONS (13)
  - Back disorder [Not Recovered/Not Resolved]
  - Deep vein thrombosis [Unknown]
  - Spinal operation [Unknown]
  - Cholecystectomy [Unknown]
  - Foot fracture [Unknown]
  - Diabetes mellitus [Unknown]
  - Menstruation irregular [Unknown]
  - Off label use [Unknown]
  - Myelopathy [Unknown]
  - Osteoarthritis [Unknown]
  - Spinal column stenosis [Unknown]
  - Abdominal pain [Unknown]
  - Pain in extremity [Unknown]
